FAERS Safety Report 15232696 (Version 1)
Quarter: 2018Q3

REPORT INFORMATION
  Report Type: Spontaneous
  Country: US (occurrence: US)
  Receive Date: 20180709
  Receipt Date: 20180709
  Transmission Date: 20181010
  Serious: Yes (Hospitalization)
  Sender: FDA-Public Use
  Company Number: None

PATIENT
  Age: 73 Year
  Sex: Female
  Weight: 102 kg

DRUGS (1)
  1. BACLOFEN. [Suspect]
     Active Substance: BACLOFEN
     Indication: MYALGIA
     Route: 048
     Dates: start: 20180616, end: 20180617

REACTIONS (7)
  - Somnolence [None]
  - Mental status changes [None]
  - Amnesia [None]
  - Loss of consciousness [None]
  - Disorientation [None]
  - Aphasia [None]
  - Sudden onset of sleep [None]

NARRATIVE: CASE EVENT DATE: 20180616
